FAERS Safety Report 22075491 (Version 2)
Quarter: 2023Q2

REPORT INFORMATION
  Report Type: Spontaneous
  Country: HU (occurrence: HU)
  Receive Date: 20230308
  Receipt Date: 20230420
  Transmission Date: 20230722
  Serious: Yes (Other)
  Sender: FDA-Public Use
  Company Number: HU-TEVA-2023-HU-2863742

PATIENT
  Age: 4 Year
  Sex: Male

DRUGS (3)
  1. NEOTIGASON [Suspect]
     Active Substance: ACITRETIN
     Indication: Pustular psoriasis
     Dosage: 10 MILLIGRAM DAILY; ONCE A DAY
     Route: 048
  2. NEOTIGASON [Suspect]
     Active Substance: ACITRETIN
     Dosage: 10 MG EVERY SECOND DAY
     Route: 048
  3. NEOTIGASON [Suspect]
     Active Substance: ACITRETIN
     Dosage: 10 MG EVERY THIRD DAY
     Route: 048

REACTIONS (2)
  - Leukopenia [Recovered/Resolved]
  - Neutropenia [Recovered/Resolved]
